FAERS Safety Report 19678287 (Version 2)
Quarter: 2021Q3

REPORT INFORMATION
  Report Type: Spontaneous
  Country: US (occurrence: US)
  Receive Date: 20210810
  Receipt Date: 20210906
  Transmission Date: 20211014
  Serious: No
  Sender: FDA-Public Use
  Company Number: US-ASTRAZENECA-2021A620548

PATIENT
  Age: 26589 Day
  Sex: Male
  Weight: 128.4 kg

DRUGS (1)
  1. BYDUREON BCISE [Suspect]
     Active Substance: EXENATIDE
     Indication: DIABETES MELLITUS
     Route: 058

REACTIONS (3)
  - Hypoacusis [Unknown]
  - Device leakage [Unknown]
  - Injection site injury [Unknown]

NARRATIVE: CASE EVENT DATE: 20210712
